FAERS Safety Report 4519015-8 (Version None)
Quarter: 2004Q4

REPORT INFORMATION
  Report Type: 
  Country: None (occurrence: None)
  Receive Date: 20041203
  Receipt Date: 20041203
  Transmission Date: 20050328
  Serious: No
  Sender: FDA-Public Use
  Company Number: None

PATIENT
  Age: 85 Year
  Sex: Female

DRUGS (2)
  1. HYDROCHLOROTHIAZIDE [Suspect]
  2. CLONIDINE [Suspect]

REACTIONS (4)
  - HEAD INJURY [None]
  - HYPONATRAEMIA [None]
  - SINUS BRADYCARDIA [None]
  - SYNCOPE [None]
